FAERS Safety Report 20164227 (Version 2)
Quarter: 2021Q4

REPORT INFORMATION
  Report Type: Report from Study
  Country: EG (occurrence: EG)
  Receive Date: 20211209
  Receipt Date: 20211222
  Transmission Date: 20220303
  Serious: Yes (Other)
  Sender: FDA-Public Use
  Company Number: EG-NOVARTISPH-NVSC2021EG279180

PATIENT
  Age: 20 Year
  Sex: Female

DRUGS (2)
  1. ELTROMBOPAG OLAMINE [Suspect]
     Active Substance: ELTROMBOPAG OLAMINE
     Indication: Product used for unknown indication
     Dosage: UNK
     Route: 065
  2. FERRO-6 [Concomitant]
     Indication: Iron deficiency
     Dosage: UNK UNK, QD (THEN 3 TIMES/ WEEK)
     Route: 065

REACTIONS (7)
  - Diabetes mellitus [Unknown]
  - Headache [Recovered/Resolved]
  - Asthenia [Unknown]
  - Myalgia [Unknown]
  - Blood glucose increased [Unknown]
  - Platelet count increased [Unknown]
  - Dizziness [Recovered/Resolved]
